FAERS Safety Report 8016702-4 (Version None)
Quarter: 2012Q1

REPORT INFORMATION
  Report Type: 
  Country: None (occurrence: None)
  Receive Date: 20120102
  Receipt Date: 20111227
  Transmission Date: 20120608
  Serious: Yes (Other)
  Sender: FDA-Public Use
  Company Number: US-BIOGENIDEC-2011BI048993

PATIENT
  Sex: Female

DRUGS (2)
  1. TYSABRI [Suspect]
     Indication: MULTIPLE SCLEROSIS
     Route: 042
     Dates: start: 20080922
  2. TYSABRI [Suspect]
     Route: 042
     Dates: start: 20071016, end: 20080313

REACTIONS (4)
  - NIGHT SWEATS [None]
  - HYSTERECTOMY [None]
  - BODY TEMPERATURE INCREASED [None]
  - INSOMNIA [None]
